FAERS Safety Report 21099792 (Version 1)
Quarter: 2022Q3

REPORT INFORMATION
  Report Type: Spontaneous
  Country: PL (occurrence: PL)
  Receive Date: 20220719
  Receipt Date: 20220719
  Transmission Date: 20221027
  Serious: Yes (Death, Other)
  Sender: FDA-Public Use
  Company Number: PL-PFIZER INC-PV202200024788

PATIENT

DRUGS (2)
  1. VIZIMPRO [Suspect]
     Active Substance: DACOMITINIB
     Indication: Non-small cell lung cancer
     Dosage: UNK
     Dates: start: 202201, end: 202205
  2. VIZIMPRO [Suspect]
     Active Substance: DACOMITINIB
     Dosage: 30 MG
     Dates: start: 202205

REACTIONS (2)
  - Death [Fatal]
  - Gastric disorder [Unknown]
